FAERS Safety Report 8348120-3 (Version None)
Quarter: 2012Q2

REPORT INFORMATION
  Report Type: 
  Country: None (occurrence: None)
  Receive Date: 20120507
  Receipt Date: 20120426
  Transmission Date: 20120825
  Serious: Yes (Hospitalization, Other)
  Sender: FDA-Public Use
  Company Number: MPS1-1000408

PATIENT
  Age: 21 Year
  Sex: Female
  Weight: 52 kg

DRUGS (1)
  1. ALDURAZYME [Suspect]
     Indication: MUCOPOLYSACCHARIDOSIS I
     Dosage: 115 U/KG, Q2W, INTRAVENOUS
     Route: 042
     Dates: start: 20030826

REACTIONS (3)
  - GRAND MAL CONVULSION [None]
  - ASTHMA [None]
  - THROMBOPHLEBITIS [None]
